FAERS Safety Report 11124012 (Version 11)
Quarter: 2016Q2

REPORT INFORMATION
  Report Type: Report from Study
  Country: NL (occurrence: NL)
  Receive Date: 20150520
  Receipt Date: 20160516
  Transmission Date: 20160815
  Serious: Yes (Death, Hospitalization)
  Sender: FDA-Public Use
  Company Number: NL-ROCHE-1576050

PATIENT
  Age: 68 Year
  Sex: Male
  Weight: 65.2 kg

DRUGS (9)
  1. DEXAMETHASONE. [Concomitant]
     Active Substance: DEXAMETHASONE
     Indication: NAUSEA
     Route: 048
     Dates: start: 20150408
  2. ATROVENT [Concomitant]
     Active Substance: IPRATROPIUM BROMIDE
     Indication: DYSPNOEA
     Dosage: REPORTER AS ATROVENT AEROSOL 200
     Route: 055
     Dates: start: 20150331
  3. PRIMPERAN [Concomitant]
     Active Substance: METOCLOPRAMIDE HYDROCHLORIDE
     Indication: NAUSEA
     Route: 048
     Dates: start: 20150501
  4. CAPECITABINE. [Suspect]
     Active Substance: CAPECITABINE
     Indication: HER-2 POSITIVE GASTRIC CANCER
     Dosage: MOST RECENT DOSE ON 09/MAY/2015 (1800 MG)
     Route: 048
     Dates: start: 20150430, end: 20150513
  5. MICROLAX (SODIUM CITRATE/SODIUM LAURYL SULFOACETATE/SORBITOL) [Concomitant]
     Indication: CONSTIPATION
     Route: 048
     Dates: start: 20150420
  6. PLACEBO [Suspect]
     Active Substance: UNSPECIFIED INGREDIENT
     Indication: HER-2 POSITIVE GASTRIC CANCER
     Dosage: LAST DOSE PRIOR TO SAE 30/APR/2015
     Route: 042
     Dates: start: 20150430, end: 20150513
  7. TRASTUZUMAB [Suspect]
     Active Substance: TRASTUZUMAB
     Indication: HER-2 POSITIVE GASTRIC CANCER
     Dosage: LOADING DOSE (8MG/KG), MOST RECENT DOSE PRIOR TO SAE 30/APR/2015
     Route: 042
     Dates: start: 20150430
  8. CISPLATIN. [Suspect]
     Active Substance: CISPLATIN
     Indication: HER-2 POSITIVE GASTRIC CANCER
     Dosage: LAST DOSE PRIOR TO AE 30/APR/2015
     Route: 042
     Dates: start: 20150430, end: 20150513
  9. ZOFRAN [Concomitant]
     Active Substance: ONDANSETRON HYDROCHLORIDE
     Indication: NAUSEA
     Route: 048
     Dates: start: 20150501

REACTIONS (2)
  - Diarrhoea [Not Recovered/Not Resolved]
  - Haemodynamic instability [Fatal]

NARRATIVE: CASE EVENT DATE: 20150509
